FAERS Safety Report 9365270 (Version 2)
Quarter: 2013Q3

REPORT INFORMATION
  Report Type: Report from Study
  Country: CA (occurrence: CA)
  Receive Date: 20130625
  Receipt Date: 20130724
  Transmission Date: 20140515
  Serious: Yes (Other)
  Sender: FDA-Public Use
  Company Number: CA-ROCHE-1240490

PATIENT
  Sex: Female
  Weight: 67 kg

DRUGS (8)
  1. ACTEMRA [Suspect]
     Indication: RHEUMATOID ARTHRITIS
     Route: 042
     Dates: start: 20110916
  2. ACTEMRA [Suspect]
     Route: 042
     Dates: start: 20120217
  3. METHOTREXATE [Concomitant]
     Route: 065
  4. ARAVA [Concomitant]
     Route: 065
  5. CELEBREX [Concomitant]
  6. PREDNISONE [Concomitant]
  7. FOLIC ACID [Concomitant]
  8. OXYCONTIN [Concomitant]
     Indication: BACK PAIN
     Route: 065

REACTIONS (3)
  - Lower limb fracture [Recovering/Resolving]
  - Fall [Unknown]
  - Weight decreased [Not Recovered/Not Resolved]
